FAERS Safety Report 9530730 (Version 1)
Quarter: 2013Q2

REPORT INFORMATION
  Report Type: Spontaneous
  Country: US (occurrence: None)
  Receive Date: 20130418
  Receipt Date: 20130418
  Transmission Date: 20140414
  Serious: Yes (Other)
  Sender: FDA-Public Use
  Company Number: 1301USA001636

PATIENT
  Age: 81 Year
  Sex: Female

DRUGS (14)
  1. MONTELUKAST SODIUM [Suspect]
  2. PREMARIN [Suspect]
  3. ALPRAZOLAM (ALPRAZOLAM) [Suspect]
  4. ARTHROTEC [Suspect]
  5. MEDROL [Suspect]
  6. LYRICA (PREGABALIN) [Suspect]
     Dosage: 150 MG (50 MG, 3 IN 1 D)
  7. TIZANIDINE HYDROCHLORIDE (TIZANIDINE HYDROCHLORIDE) [Concomitant]
  8. EFFEXOR XR (VENLAFAXINE HYDROCHLORIDE) [Concomitant]
  9. AMBIEN (ZOLPIDEM TARTRATE) [Concomitant]
  10. ACTONEL (RISEDRONATE SODIUM) [Concomitant]
  11. HYDROCODONE (HYDROCODONE) [Concomitant]
  12. OXYCONTIN (OXYCODONE HYDROCHLORIDE) [Concomitant]
  13. NEXIUM (ESOMEPRAZOLE MAGNESIUM) [Concomitant]
  14. BIAXIN (CLARITHROMYCIN) [Concomitant]

REACTIONS (5)
  - Upper respiratory tract infection [None]
  - Unevaluable event [None]
  - Pain [None]
  - Movement disorder [None]
  - Disorientation [None]
